FAERS Safety Report 4266025-4 (Version None)
Quarter: 2004Q1

REPORT INFORMATION
  Report Type: 
  Country: None (occurrence: None)
  Receive Date: 20040106
  Receipt Date: 20031224
  Transmission Date: 20041129
  Serious: Yes (Other)
  Sender: FDA-Public Use
  Company Number: 2003126844

PATIENT
  Sex: Female

DRUGS (1)
  1. NORVASC [Suspect]
     Indication: BLOOD PRESSURE INCREASED
     Dosage: 10 MG, ORAL
     Route: 048
     Dates: start: 20021202, end: 20030801

REACTIONS (11)
  - ANOREXIA [None]
  - BACK PAIN [None]
  - DEPRESSION [None]
  - DYSPNOEA [None]
  - EYE HAEMORRHAGE [None]
  - HYPOAESTHESIA [None]
  - LIVER FUNCTION TEST ABNORMAL [None]
  - MALAISE [None]
  - PAIN IN EXTREMITY [None]
  - PALPITATIONS [None]
  - VITREOUS FLOATERS [None]
